FAERS Safety Report 10180706 (Version 1)
Quarter: 2014Q2

REPORT INFORMATION
  Report Type: Spontaneous
  Country: US (occurrence: US)
  Receive Date: 20140519
  Receipt Date: 20140519
  Transmission Date: 20141212
  Serious: No
  Sender: FDA-Public Use
  Company Number: US-AMGEN INC.-USASP2014017250

PATIENT
  Age: 54 Year
  Sex: Female

DRUGS (4)
  1. PROLIA [Suspect]
     Indication: OSTEOPOROSIS POSTMENOPAUSAL
     Dosage: UNK UNK, Q6MO
     Route: 065
     Dates: start: 201310
  2. CALCIUM [Concomitant]
     Route: 065
  3. VITAMIN D                          /00107901/ [Concomitant]
     Route: 065
  4. ANGELIQ [Concomitant]
     Indication: HORMONE THERAPY
     Route: 065

REACTIONS (4)
  - Pigmentation disorder [Not Recovered/Not Resolved]
  - Sinus disorder [Unknown]
  - Pruritus [Unknown]
  - Eczema [Unknown]
